FAERS Safety Report 20951301 (Version 1)
Quarter: 2022Q2

REPORT INFORMATION
  Report Type: Spontaneous
  Country: US (occurrence: US)
  Receive Date: 20220613
  Receipt Date: 20220613
  Transmission Date: 20220720
  Serious: No
  Sender: FDA-Public Use
  Company Number: US-BRISTOL-MYERS SQUIBB COMPANY-2022-055382

PATIENT
  Age: 60 Year
  Sex: Female

DRUGS (2)
  1. ORENCIA [Suspect]
     Active Substance: ABATACEPT
     Indication: Rheumatoid arthritis
     Route: 058
     Dates: start: 202106
  2. COVID BOOSTER [Concomitant]
     Indication: COVID-19 immunisation
     Route: 065

REACTIONS (2)
  - Nasopharyngitis [Recovering/Resolving]
  - Intentional product use issue [Unknown]
